FAERS Safety Report 7097134-2 (Version None)
Quarter: 2010Q4

REPORT INFORMATION
  Report Type: 
  Country: None (occurrence: None)
  Receive Date: 20101111
  Receipt Date: 20101105
  Transmission Date: 20110411
  Serious: Yes (Hospitalization)
  Sender: FDA-Public Use
  Company Number: IT-PFIZER INC-2010135673

PATIENT
  Age: 45 Year
  Sex: Male

DRUGS (4)
  1. ZELDOX [Suspect]
     Indication: PSYCHOTIC DISORDER
     Dosage: 120 MG, 1X/DAY
     Route: 048
     Dates: start: 20100929, end: 20101004
  2. ALPRAZOLAM [Concomitant]
     Dosage: UNK
  3. ENTUMIN [Concomitant]
     Dosage: 100 MG/ML, UNK
     Route: 048
  4. GLUCOPHAGE [Concomitant]
     Dosage: UNK

REACTIONS (3)
  - DELIRIUM [None]
  - HYPERTHERMIA MALIGNANT [None]
  - PNEUMONIA [None]
